FAERS Safety Report 4382244-0 (Version None)
Quarter: 2004Q2

REPORT INFORMATION
  Report Type: 
  Country: None (occurrence: None)
  Receive Date: 20040616
  Receipt Date: 20040504
  Transmission Date: 20050107
  Serious: Yes (Hospitalization)
  Sender: FDA-Public Use
  Company Number: A01200402110

PATIENT
  Age: 47 Year
  Sex: Female

DRUGS (1)
  1. ELOXATIN [Suspect]

REACTIONS (2)
  - CEREBELLAR ATAXIA [None]
  - MALIGNANT NEOPLASM PROGRESSION [None]
